FAERS Safety Report 6248442-6 (Version None)
Quarter: 2009Q2

REPORT INFORMATION
  Report Type: 
  Country: None (occurrence: None)
  Receive Date: 20090625
  Receipt Date: 20090625
  Transmission Date: 20091009
  Serious: Yes (Hospitalization)
  Sender: FDA-Public Use
  Company Number: None

PATIENT
  Age: 63 Year
  Sex: Female
  Weight: 78.9259 kg

DRUGS (1)
  1. XELODA [Suspect]
     Indication: RECTAL CANCER
     Dosage: 1500 MG AM PO 1500 MG PM PO
     Route: 048
     Dates: start: 20090601, end: 20090605

REACTIONS (8)
  - DEHYDRATION [None]
  - DYSPHAGIA [None]
  - ENTERITIS [None]
  - MOUTH ULCERATION [None]
  - MUCOSAL INFLAMMATION [None]
  - NAUSEA [None]
  - PALMAR-PLANTAR ERYTHRODYSAESTHESIA SYNDROME [None]
  - RASH [None]
